FAERS Safety Report 14474016 (Version 2)
Quarter: 2018Q1

REPORT INFORMATION
  Report Type: Report from Study
  Country: DE (occurrence: DE)
  Receive Date: 20180201
  Receipt Date: 20180211
  Transmission Date: 20180509
  Serious: Yes (Death, Other)
  Sender: FDA-Public Use
  Company Number: PHHY2017DE193320

PATIENT
  Sex: Male
  Weight: 66 kg

DRUGS (5)
  1. DEXAMETHASON [Concomitant]
     Active Substance: DEXAMETHASONE
     Indication: NAUSEA
     Dosage: 2 MG, QD
     Route: 048
     Dates: start: 20171002, end: 20171025
  2. FENISTIL 24-STUNDEN [Suspect]
     Active Substance: DIMETHINDENE MALEATE
     Indication: DRUG ERUPTION
     Dosage: 4 MG, UNK
     Route: 048
     Dates: start: 20170801, end: 20170803
  3. DEXAMETHASON [Concomitant]
     Active Substance: DEXAMETHASONE
     Dosage: 1 MG, QD
     Route: 048
     Dates: start: 20171026
  4. VOTRIENT [Suspect]
     Active Substance: PAZOPANIB HYDROCHLORIDE
     Indication: METASTATIC RENAL CELL CARCINOMA
     Dosage: 400 MG, QD
     Route: 048
     Dates: start: 20170623, end: 20171218
  5. OPDIVO [Suspect]
     Active Substance: NIVOLUMAB
     Indication: METASTATIC RENAL CELL CARCINOMA
     Dosage: 3 MG/KG, UNK
     Route: 042
     Dates: start: 20180104, end: 20180104

REACTIONS (3)
  - Drug eruption [Recovered/Resolved]
  - Ilium fracture [Recovering/Resolving]
  - Death [Fatal]

NARRATIVE: CASE EVENT DATE: 20170801
